FAERS Safety Report 13711206 (Version 1)
Quarter: 2017Q3

REPORT INFORMATION
  Report Type: Spontaneous
  Country: BE (occurrence: BE)
  Receive Date: 20170703
  Receipt Date: 20170703
  Transmission Date: 20171127
  Serious: Yes (Hospitalization)
  Sender: FDA-Public Use
  Company Number: BE-BAYER-2017-126648

PATIENT
  Age: 36 Year
  Sex: Female
  Weight: 95 kg

DRUGS (1)
  1. MIRENA [Suspect]
     Active Substance: LEVONORGESTREL
     Indication: CONTRACEPTION
     Dosage: 20 MCG/24HR, CONT
     Route: 015
     Dates: start: 20121105, end: 201510

REACTIONS (16)
  - Mood swings [Recovered/Resolved]
  - Headache [Recovered/Resolved]
  - Memory impairment [Recovering/Resolving]
  - Disturbance in attention [Recovering/Resolving]
  - Weight increased [Not Recovered/Not Resolved]
  - Loss of libido [Recovered/Resolved]
  - Vaginal haemorrhage [Recovered/Resolved]
  - Hirsutism [Not Recovered/Not Resolved]
  - Fatigue [Recovering/Resolving]
  - Apathy [Recovered/Resolved]
  - Uterine perforation [Recovered/Resolved]
  - Depression [Recovered/Resolved]
  - Abdominal pain lower [Recovered/Resolved]
  - Procedural pain [Recovered/Resolved]
  - Polycystic ovaries [Not Recovered/Not Resolved]
  - Anxiety [Recovered/Resolved]

NARRATIVE: CASE EVENT DATE: 20121105
